FAERS Safety Report 24937432 (Version 1)
Quarter: 2025Q1

REPORT INFORMATION
  Report Type: Spontaneous
  Country: US (occurrence: US)
  Receive Date: 20250206
  Receipt Date: 20250206
  Transmission Date: 20250408
  Serious: No
  Sender: BAYER HEALTHCARE PHARMACEUTICALS INC.
  Company Number: US-BAYER-2025A011442

PATIENT
  Sex: Female

DRUGS (4)
  1. BETASERON [Suspect]
     Active Substance: INTERFERON BETA-1B
  2. FINGOLIMOD [Concomitant]
     Active Substance: FINGOLIMOD
  3. AVONEX [Concomitant]
     Active Substance: INTERFERON BETA-1A
  4. Immunoglobulin [Concomitant]

REACTIONS (1)
  - Drug ineffective [None]
